FAERS Safety Report 7071147-9 (Version None)
Quarter: 2010Q4

REPORT INFORMATION
  Report Type: 
  Country: None (occurrence: None)
  Receive Date: 20101029
  Receipt Date: 20101023
  Transmission Date: 20110411
  Serious: Yes (Other)
  Sender: FDA-Public Use
  Company Number: US-PFIZER INC-2007099784

PATIENT
  Sex: Female
  Weight: 68 kg

DRUGS (12)
  1. CHANTIX [Suspect]
     Indication: SMOKING CESSATION THERAPY
     Dosage: 0.5 MG, 1X/DAY
     Route: 048
     Dates: start: 20070901, end: 20071001
  2. CHANTIX [Suspect]
     Dosage: 1 MG, 2X/DAY
     Dates: start: 20071001, end: 20071201
  3. CHANTIX [Suspect]
     Dosage: 1 MG, 2X/DAY
     Route: 048
     Dates: start: 20100201, end: 20100201
  4. CHANTIX [Suspect]
     Dosage: 1 MG, 1X/DAY
     Route: 048
     Dates: start: 20100201, end: 20100501
  5. INFLUENZA VACCINE [Suspect]
     Dates: start: 20071206, end: 20071206
  6. AVAPRO [Concomitant]
  7. LISINOPRIL [Concomitant]
     Indication: HYPERTENSION
     Dosage: 20 MG, 1X/DAY
     Route: 048
  8. LISINOPRIL [Concomitant]
     Dosage: 20 MG, UNK
  9. ASCORBIC ACID [Concomitant]
     Dosage: UNK
  10. MULTI-VITAMINS [Concomitant]
     Dosage: UNK
  11. VITAMIN B-12 [Concomitant]
     Dosage: UNK
  12. VITAMIN E [Concomitant]
     Dosage: UNK

REACTIONS (10)
  - ABNORMAL DREAMS [None]
  - CIRCUMSTANCE OR INFORMATION CAPABLE OF LEADING TO MEDICATION ERROR [None]
  - DRUG INEFFECTIVE [None]
  - HOT FLUSH [None]
  - HYPERSENSITIVITY [None]
  - IRRITABILITY [None]
  - PRURITUS [None]
  - RASH [None]
  - SLEEP DISORDER [None]
  - URTICARIA [None]
